FAERS Safety Report 6702668-3 (Version None)
Quarter: 2010Q2

REPORT INFORMATION
  Report Type: 
  Country: None (occurrence: None)
  Receive Date: 20100429
  Receipt Date: 20100422
  Transmission Date: 20101027
  Serious: Yes (Death)
  Sender: FDA-Public Use
  Company Number: DE-CEPHALON-2010001957

PATIENT
  Age: 74 Year
  Sex: Male
  Weight: 164 kg

DRUGS (5)
  1. TREANDA [Suspect]
     Indication: CHRONIC LYMPHOCYTIC LEUKAEMIA
     Dates: start: 20100224
  2. RITUXIMAB [Suspect]
     Dates: start: 20100224, end: 20100324
  3. PARACETAMOL [Concomitant]
  4. CALCIUM ACETATE [Concomitant]
  5. CERTOPARIN SODIUM [Concomitant]

REACTIONS (1)
  - BRONCHITIS [None]
